FAERS Safety Report 4976464-1 (Version None)
Quarter: 2006Q2

REPORT INFORMATION
  Report Type: 
  Country: None (occurrence: None)
  Receive Date: 20060412
  Receipt Date: 20060404
  Transmission Date: 20061013
  Serious: Yes (Other)
  Sender: FDA-Public Use
  Company Number: 2006047139

PATIENT
  Age: 78 Year
  Sex: Female
  Weight: 64.4108 kg

DRUGS (2)
  1. LIPITOR [Suspect]
     Indication: BLOOD CHOLESTEROL
     Dosage: 10 MG (10 MG, 1 IN 1 D), ORAL
     Route: 048
  2. FOSAMAX [Concomitant]

REACTIONS (5)
  - CATARACT [None]
  - DIPLOPIA [None]
  - MULTIPLE ALLERGIES [None]
  - RHINORRHOEA [None]
  - SNEEZING [None]
